FAERS Safety Report 6484865-8 (Version None)
Quarter: 2009Q4

REPORT INFORMATION
  Report Type: 
  Country: None (occurrence: None)
  Receive Date: 20091123
  Receipt Date: 20090911
  Transmission Date: 20100525
  Serious: No
  Sender: FDA-Public Use
  Company Number: 8052013

PATIENT
  Age: 71 Year
  Sex: Male
  Weight: 83.91 kg

DRUGS (3)
  1. CIMZIA [Suspect]
     Indication: CROHN'S DISEASE
     Dosage: 400 MG /M SC
     Route: 058
     Dates: start: 20090609
  2. PREDNISONE TAB [Concomitant]
  3. PENTASA [Concomitant]

REACTIONS (1)
  - HYPERHIDROSIS [None]
